FAERS Safety Report 17680830 (Version 1)
Quarter: 2020Q2

REPORT INFORMATION
  Report Type: Spontaneous
  Country: GB (occurrence: GB)
  Receive Date: 20200417
  Receipt Date: 20200417
  Transmission Date: 20200714
  Serious: Yes (Hospitalization)
  Sender: FDA-Public Use
  Company Number: GB-MYLANLABS-2020M1038867

PATIENT
  Age: 63 Year
  Sex: Male

DRUGS (5)
  1. PROPRANOLOL [Concomitant]
     Active Substance: PROPRANOLOL HYDROCHLORIDE
     Dosage: MORNING
     Route: 048
  2. WARFARIN [Suspect]
     Active Substance: WARFARIN
     Indication: VALVULOPLASTY CARDIAC
     Dosage: AS DIRECTED.SUSPENDED FOR SURGERY-TINZAPARIN AFTER SURGERY FOR HIGH RISK VALVE
     Route: 048
     Dates: end: 20200304
  3. METFORMIN [Concomitant]
     Active Substance: METFORMIN HYDROCHLORIDE
     Dosage: 1000 MILLIGRAM, QD
     Route: 048
  4. ATORVASTATIN [Concomitant]
     Active Substance: ATORVASTATIN
     Dosage: NIGHT
     Route: 048
  5. RAMIPRIL. [Concomitant]
     Active Substance: RAMIPRIL
     Dosage: MORNING.
     Route: 048

REACTIONS (4)
  - Subdural haematoma [Recovering/Resolving]
  - Headache [Unknown]
  - Confusional state [Unknown]
  - Dysarthria [Unknown]

NARRATIVE: CASE EVENT DATE: 20200217
